FAERS Safety Report 4645334-0 (Version None)
Quarter: 2005Q2

REPORT INFORMATION
  Report Type: 
  Country: None (occurrence: None)
  Receive Date: 20050331
  Receipt Date: 20041223
  Transmission Date: 20051028
  Serious: No
  Sender: FDA-Public Use
  Company Number: 04P-163-0284544-00

PATIENT
  Age: 68 Year
  Sex: Male
  Weight: 100 kg

DRUGS (9)
  1. HUMIRA [Suspect]
     Indication: RHEUMATOID ARTHRITIS
     Dosage: 40 MG, 1 IN 2 WK, SUBCUTANEOUS
     Route: 058
     Dates: start: 20030101
  2. METHOTREXATE [Concomitant]
  3. XYLOPRIM [Concomitant]
  4. FOLIC ACID [Concomitant]
  5. ACETYL SALICYLIC ACID USP BAT [Concomitant]
  6. MULTIVITAMIN [Concomitant]
  7. METHYLCELLULOSE [Concomitant]
  8. LAXATIVES [Concomitant]
  9. RANITIDINE HYDROCHLORIDE [Concomitant]

REACTIONS (1)
  - PROSTATE CANCER [None]
